FAERS Safety Report 13278882 (Version 1)
Quarter: 2017Q1

REPORT INFORMATION
  Report Type: Spontaneous
  Country: US (occurrence: US)
  Receive Date: 20170228
  Receipt Date: 20170228
  Transmission Date: 20170428
  Serious: Yes (Other)
  Sender: FDA-Public Use
  Company Number: US-009507513-1702USA011284

PATIENT
  Age: 69 Year
  Sex: Male

DRUGS (6)
  1. AMBIEN [Concomitant]
     Active Substance: ZOLPIDEM TARTRATE
  2. TEMAZEPAM. [Concomitant]
     Active Substance: TEMAZEPAM
  3. AMITRIPTYLINE HYDROCHLORIDE. [Concomitant]
     Active Substance: AMITRIPTYLINE HYDROCHLORIDE
  4. KEYTRUDA [Suspect]
     Active Substance: PEMBROLIZUMAB
     Indication: RECTAL CANCER
     Dosage: 156.2 MG, EVERY 3 WEEKS
     Route: 042
     Dates: start: 201611, end: 20170131
  5. PEPCID [Concomitant]
     Active Substance: FAMOTIDINE
  6. CELEBREX [Concomitant]
     Active Substance: CELECOXIB

REACTIONS (2)
  - Malignant neoplasm progression [Unknown]
  - Product use issue [Unknown]

NARRATIVE: CASE EVENT DATE: 201611
